FAERS Safety Report 6060065-0 (Version None)
Quarter: 2009Q1

REPORT INFORMATION
  Report Type: 
  Country: None (occurrence: None)
  Receive Date: 20090130
  Receipt Date: 20090121
  Transmission Date: 20090719
  Serious: Yes (Disabling, Other)
  Sender: FDA-Public Use
  Company Number: US-ELI_LILLY_AND_COMPANY-US200901003543

PATIENT
  Sex: Female

DRUGS (3)
  1. ZYPREXA [Suspect]
     Indication: DEMENTIA
     Dosage: 5 MG, DAILY (1/D)
     Dates: start: 19990101, end: 20040101
  2. EFFEXOR [Concomitant]
     Indication: DEMENTIA
     Dates: end: 20040101
  3. ARICEPT [Concomitant]
     Indication: DEMENTIA
     Dates: end: 20040101

REACTIONS (7)
  - APHASIA [None]
  - CONVULSION [None]
  - FALL [None]
  - GAIT DISTURBANCE [None]
  - HEAD INJURY [None]
  - INSOMNIA [None]
  - JOINT CONTRACTURE [None]
